FAERS Safety Report 9646074 (Version 4)
Quarter: 2013Q4

REPORT INFORMATION
  Report Type: Spontaneous
  Country: US (occurrence: None)
  Receive Date: 20131023
  Receipt Date: 20131129
  Transmission Date: 20140711
  Serious: Yes (Hospitalization, Disabling, Other)
  Sender: FDA-Public Use
  Company Number: DSU-2013-04817

PATIENT
  Age: 36 Year
  Sex: Female
  Weight: 72.6 kg

DRUGS (11)
  1. OLMESARTAN [Suspect]
     Indication: HYPERTENSION
     Route: 048
  2. MESCOLOR [Suspect]
     Indication: PRODUCT USED FOR UNKNOWN INDICATION
  3. CHLORPHENAMINE MALEATE [Suspect]
     Indication: PRODUCT USED FOR UNKNOWN INDICATION
  4. ENDAL HD [Suspect]
     Indication: PRODUCT USED FOR UNKNOWN INDICATION
  5. ZYDONE [Suspect]
     Indication: PRODUCT USED FOR UNKNOWN INDICATION
  6. LORTAB [Suspect]
     Indication: PRODUCT USED FOR UNKNOWN INDICATION
  7. LORCET-HD [Suspect]
     Indication: PRODUCT USED FOR UNKNOWN INDICATION
  8. PERCOCET [Suspect]
     Indication: PRODUCT USED FOR UNKNOWN INDICATION
  9. CARBIDOPA W/LEVODOPA [Suspect]
  10. SINEMET [Suspect]
  11. ERYTHROMYCIN [Suspect]

REACTIONS (25)
  - Drug interaction [None]
  - Deep vein thrombosis [None]
  - Arthritis [None]
  - Blood chloride decreased [None]
  - Blood cholesterol increased [None]
  - Bronchitis [None]
  - Cholelithiasis [None]
  - Glaucoma [None]
  - Neuropathy peripheral [None]
  - Osteoarthritis [None]
  - Phlebitis [None]
  - Purpura senile [None]
  - Resorption bone increased [None]
  - Tarsal tunnel syndrome [None]
  - Thrombophlebitis superficial [None]
  - Vasculitis [None]
  - Vertigo [None]
  - Vertigo positional [None]
  - Vestibular disorder [None]
  - Renal failure [None]
  - Blood sodium decreased [None]
  - Dizziness [None]
  - Alanine aminotransferase increased [None]
  - Aspartate aminotransferase increased [None]
  - Renal failure [None]
